FAERS Safety Report 7773713-1 (Version None)
Quarter: 2011Q3

REPORT INFORMATION
  Report Type: 
  Country: None (occurrence: None)
  Receive Date: 20110920
  Receipt Date: 20110915
  Transmission Date: 20111222
  Serious: Yes (Hospitalization)
  Sender: FDA-Public Use
  Company Number: USA/USA/11/0021185

PATIENT
  Age: 83 Year
  Sex: Female
  Weight: 40.8237 kg

DRUGS (3)
  1. OMEPRAZOLE [Suspect]
     Indication: GASTROOESOPHAGEAL REFLUX DISEASE
     Dosage: 20 MG, 2 IN 1 D, ORAL
     Route: 048
     Dates: start: 20080101, end: 20110901
  2. OXYCONTIN [Concomitant]
  3. OXYCODONE [Concomitant]

REACTIONS (9)
  - PRURITUS [None]
  - DIARRHOEA [None]
  - SKIN LESION [None]
  - FEELING ABNORMAL [None]
  - ANAEMIA [None]
  - HALLUCINATION [None]
  - APHAGIA [None]
  - DYSPEPSIA [None]
  - PAIN [None]
